FAERS Safety Report 10167979 (Version 2)
Quarter: 2014Q2

REPORT INFORMATION
  Report Type: Report from Study
  Country: GB (occurrence: GB)
  Receive Date: 20140512
  Receipt Date: 20140527
  Transmission Date: 20141212
  Serious: Yes (Hospitalization)
  Sender: FDA-Public Use
  Company Number: GB-GLAXOSMITHKLINE-B0988066A

PATIENT
  Age: 66 Year
  Sex: Male

DRUGS (3)
  1. SALMETEROL + FLUTICASONE [Suspect]
     Indication: CHRONIC OBSTRUCTIVE PULMONARY DISEASE
     Route: 055
     Dates: start: 20140331
  2. SALBUTAMOL(NEBULES) [Suspect]
     Indication: ELECTROLYTE IMBALANCE
     Route: 055
     Dates: start: 20140421
  3. SERETIDE [Concomitant]
     Indication: CHRONIC OBSTRUCTIVE PULMONARY DISEASE
     Route: 055
     Dates: end: 20140330

REACTIONS (2)
  - Pneumonia [Recovering/Resolving]
  - Electrolyte imbalance [Recovered/Resolved]
